FAERS Safety Report 9843197 (Version 2)
Quarter: 2014Q1

REPORT INFORMATION
  Report Type: Report from Study
  Country: DE (occurrence: DE)
  Receive Date: 20140124
  Receipt Date: 20140130
  Transmission Date: 20141002
  Serious: Yes (Death)
  Sender: FDA-Public Use
  Company Number: DE-ABBVIE-14P-062-1194318-00

PATIENT
  Age: 85 Year
  Sex: Male

DRUGS (5)
  1. LEUPRORELIN DEPOT [Suspect]
     Indication: PROSTATE CANCER
     Route: 058
     Dates: start: 20130103, end: 20130729
  2. UNSPECIFIED LIPID-LOWERING AGENT (ALL OTHER THERAPEUTIC PRODUCTS) [Concomitant]
     Indication: PRODUCT USED FOR UNKNOWN INDICATION
  3. UNSPECIFIED ANTIHYPERTENSIVE (ANTIHYPERTINSIVES) [Concomitant]
     Indication: PRODUCT USED FOR UNKNOWN INDICATION
  4. ACETYLSALICYLIC ACID [Concomitant]
     Indication: PRODUCT USED FOR UNKNOWN INDICATION
  5. BICALUTAMID [Concomitant]
     Indication: PRODUCT USED FOR UNKNOWN INDICATION
     Dates: start: 2013

REACTIONS (2)
  - Chronic obstructive pulmonary disease [Fatal]
  - Coronary artery disease [Fatal]
